FAERS Safety Report 17978946 (Version 1)
Quarter: 2020Q3

REPORT INFORMATION
  Report Type: Spontaneous
  Country: FR (occurrence: FR)
  Receive Date: 20200703
  Receipt Date: 20200703
  Transmission Date: 20201103
  Serious: Yes (Other)
  Sender: FDA-Public Use
  Company Number: FR-SA-2020SA169347

PATIENT

DRUGS (6)
  1. MABTHERA [Suspect]
     Active Substance: RITUXIMAB
     Indication: LYMPHOMA
     Dosage: UNK
     Route: 041
     Dates: start: 20180410, end: 20180527
  2. DOXORUBICIN [Suspect]
     Active Substance: DOXORUBICIN
     Indication: LYMPHOMA
     Dosage: UNK
     Route: 041
     Dates: start: 20140129, end: 20140516
  3. CYTARABINE. [Suspect]
     Active Substance: CYTARABINE
     Indication: LYMPHOMA
     Dosage: UNK
     Route: 041
     Dates: start: 20180410, end: 20180827
  4. VINCRISTINE SULFATE. [Suspect]
     Active Substance: VINCRISTINE SULFATE
     Indication: LYMPHOMA
     Dosage: UNK
     Route: 041
     Dates: start: 20140129, end: 20140516
  5. OXALIPLATIN. [Suspect]
     Active Substance: OXALIPLATIN
     Indication: LYMPHOMA
     Dosage: UNK
     Route: 041
     Dates: start: 20180410, end: 20180527
  6. CYCLOPHOSPHAMIDE. [Suspect]
     Active Substance: CYCLOPHOSPHAMIDE
     Indication: LYMPHOMA
     Dosage: UNK
     Route: 041
     Dates: start: 20140129, end: 20140516

REACTIONS (1)
  - Cognitive disorder [Not Recovered/Not Resolved]

NARRATIVE: CASE EVENT DATE: 20180510
